FAERS Safety Report 8083371-7 (Version None)
Quarter: 2012Q1

REPORT INFORMATION
  Report Type: 
  Country: None (occurrence: None)
  Receive Date: 20120127
  Receipt Date: 20110113
  Transmission Date: 20120608
  Serious: No
  Sender: FDA-Public Use
  Company Number: US-ABBOTT-11P-163-0697928-00

PATIENT
  Sex: Female

DRUGS (5)
  1. HUMIRA [Suspect]
     Indication: RHEUMATOID ARTHRITIS
     Dates: start: 20101014
  2. SALSALATE [Concomitant]
     Indication: RHEUMATOID ARTHRITIS
  3. SULFASALAZINE [Concomitant]
     Indication: PAIN
  4. ESTRADIOL [Concomitant]
     Indication: OESTROGEN REPLACEMENT THERAPY
  5. TOPROL-XL [Concomitant]
     Indication: HYPERTENSION

REACTIONS (3)
  - SKIN WARM [None]
  - INJECTION SITE URTICARIA [None]
  - URTICARIA [None]
